FAERS Safety Report 9306320 (Version 2)
Quarter: 2013Q3

REPORT INFORMATION
  Report Type: Spontaneous
  Country: US (occurrence: US)
  Receive Date: 20130523
  Receipt Date: 20130805
  Transmission Date: 20140515
  Serious: Yes (Hospitalization)
  Sender: FDA-Public Use
  Company Number: US-COVIDIEN/TYCO HEALTHCARE/MALLINCKRODT-T201302222

PATIENT
  Age: 44 Year
  Sex: Male

DRUGS (2)
  1. GABLOFEN [Suspect]
     Indication: MUSCLE SPASTICITY
     Dosage: 380.9 MCG/DAY
     Route: 037
  2. GABLOFEN [Suspect]
     Dosage: 549.5 MCG PER DAY

REACTIONS (5)
  - Autonomic dysreflexia [Recovered/Resolved]
  - Pyrexia [Recovered/Resolved]
  - Muscle spasticity [Not Recovered/Not Resolved]
  - Hypertension [Recovered/Resolved]
  - Device failure [Unknown]
